FAERS Safety Report 8521238-8 (Version None)
Quarter: 2012Q3

REPORT INFORMATION
  Report Type: 
  Country: None (occurrence: None)
  Receive Date: 20120712
  Receipt Date: 20120712
  Transmission Date: 20120928
  Serious: Yes (Other)
  Sender: FDA-Public Use
  Company Number: None

PATIENT
  Age: 44 Year
  Sex: Female
  Weight: 54.4316 kg

DRUGS (1)
  1. NEULASTA [Suspect]
     Indication: NEOPLASM MALIGNANT
     Dosage: 1 INJECTION VARIES IM
     Route: 030

REACTIONS (1)
  - BONE PAIN [None]
